FAERS Safety Report 20059067 (Version 2)
Quarter: 2021Q4

REPORT INFORMATION
  Report Type: Spontaneous
  Country: US (occurrence: US)
  Receive Date: 20211111
  Receipt Date: 20211116
  Transmission Date: 20220304
  Serious: No
  Sender: FDA-Public Use
  Company Number: US-SANOFI-00847392

PATIENT
  Age: 59 Year
  Sex: Male

DRUGS (3)
  1. NASACORT ALLERGY 24HR [Suspect]
     Active Substance: TRIAMCINOLONE ACETONIDE
     Indication: Nasal polyps
     Dosage: 1 DF, QD
  2. FLONASE [Suspect]
     Active Substance: FLUTICASONE PROPIONATE
  3. SODIUM CHLORIDE [Concomitant]
     Active Substance: SODIUM CHLORIDE

REACTIONS (4)
  - Illness [Unknown]
  - Influenza like illness [Unknown]
  - Sneezing [Unknown]
  - Incorrect product administration duration [Unknown]
